FAERS Safety Report 15729478 (Version 1)
Quarter: 2018Q4

REPORT INFORMATION
  Report Type: Spontaneous
  Country: CH (occurrence: CH)
  Receive Date: 20181217
  Receipt Date: 20181217
  Transmission Date: 20190205
  Serious: Yes (Death)
  Sender: FDA-Public Use
  Company Number: CH-BAYER-2018-230482

PATIENT
  Age: 91 Year
  Sex: Female
  Weight: 60 kg

DRUGS (5)
  1. ELIQUIS [Interacting]
     Active Substance: APIXABAN
     Indication: ATRIAL FIBRILLATION
     Dosage: 2.5 MG, BID
     Route: 048
     Dates: start: 20181126, end: 20181127
  2. MIMPARA [Concomitant]
     Active Substance: CINACALCET HYDROCHLORIDE
     Dosage: 3 MG, QD
     Route: 048
  3. ASPIRIN CARDIO 100 MG [Suspect]
     Active Substance: ASPIRIN
     Indication: CEREBROVASCULAR ACCIDENT PROPHYLAXIS
     Dosage: 100 MG, QD
     Route: 048
     Dates: start: 20181114
  4. CRESTOR [Concomitant]
     Active Substance: ROSUVASTATIN CALCIUM
     Dosage: 5 MG, QD
     Route: 048
  5. TRIATEC [RAMIPRIL] [Concomitant]
     Active Substance: RAMIPRIL
     Dosage: 1.25 MG, QD
     Route: 048
     Dates: start: 20181114

REACTIONS (1)
  - Subdural haematoma [Fatal]

NARRATIVE: CASE EVENT DATE: 20181128
